FAERS Safety Report 7168120-9 (Version None)
Quarter: 2010Q4

REPORT INFORMATION
  Report Type: 
  Country: None (occurrence: None)
  Receive Date: 20101216
  Receipt Date: 20101206
  Transmission Date: 20110411
  Serious: Yes (Other)
  Sender: FDA-Public Use
  Company Number: US-PURDUE-USA-2010-0051016

PATIENT
  Sex: Female
  Weight: 90.703 kg

DRUGS (6)
  1. OXYCONTIN [Suspect]
     Indication: PAIN
     Dosage: 40 MG, TID
     Route: 048
  2. OXYCONTIN [Suspect]
     Indication: MENISCUS LESION
  3. OXYCONTIN [Suspect]
     Indication: PROCEDURAL PAIN
  4. MOTRIN [Concomitant]
     Indication: PRODUCT USED FOR UNKNOWN INDICATION
     Dosage: 800 MG, TID
  5. PROZAC [Concomitant]
     Indication: PRODUCT USED FOR UNKNOWN INDICATION
     Dosage: 60 MG, QD PRN
  6. ALBUTEROL [Concomitant]
     Indication: PRODUCT USED FOR UNKNOWN INDICATION
     Route: 045

REACTIONS (8)
  - ANGIOEDEMA [None]
  - BLISTER [None]
  - DRUG EFFECT DECREASED [None]
  - FOREIGN BODY [None]
  - SCAR [None]
  - SKIN HAEMORRHAGE [None]
  - SWELLING FACE [None]
  - URTICARIA [None]
